FAERS Safety Report 6171516-5 (Version None)
Quarter: 2009Q2

REPORT INFORMATION
  Report Type: 
  Country: None (occurrence: None)
  Receive Date: 20090429
  Receipt Date: 20090316
  Transmission Date: 20091009
  Serious: Yes (Other)
  Sender: FDA-Public Use
  Company Number: US-PFIZER INC-2009186780

PATIENT
  Sex: Female
  Weight: 113.39 kg

DRUGS (7)
  1. DETROL [Suspect]
     Indication: BLADDER DISORDER
  2. DETROL LA [Suspect]
     Indication: BLADDER DISORDER
     Dates: start: 20090301
  3. ALL OTHER THERAPEUTIC PRODUCTS [Concomitant]
  4. ALL OTHER THERAPEUTIC PRODUCTS [Concomitant]
  5. ALL OTHER THERAPEUTIC PRODUCTS [Concomitant]
  6. ALL OTHER THERAPEUTIC PRODUCTS [Concomitant]
  7. ALL OTHER THERAPEUTIC PRODUCTS [Concomitant]

REACTIONS (3)
  - FLUID RETENTION [None]
  - GAIT DISTURBANCE [None]
  - GLAUCOMA [None]
